FAERS Safety Report 13175421 (Version 2)
Quarter: 2018Q1

REPORT INFORMATION
  Report Type: Spontaneous
  Country: US (occurrence: US)
  Receive Date: 20170201
  Receipt Date: 20180223
  Transmission Date: 20180508
  Serious: No
  Sender: FDA-Public Use
  Company Number: US-PFIZER INC-2017041416

PATIENT
  Age: 56 Year
  Sex: Female

DRUGS (9)
  1. BIAXIN [Suspect]
     Active Substance: CLARITHROMYCIN
  2. GENOTROPIN [Concomitant]
     Active Substance: SOMATROPIN
     Dosage: 0.2 MG, 2X/WEEK
  3. IODINE. [Suspect]
     Active Substance: IODINE
  4. GENOTROPIN [Concomitant]
     Active Substance: SOMATROPIN
     Dosage: 0.2 MG, WEEKLY (2-3 TIMES)
  5. GENOTROPIN [Concomitant]
     Active Substance: SOMATROPIN
     Dosage: 0.6 MG, DAILY
     Route: 058
  6. SPIRONOLACTONE. [Concomitant]
     Active Substance: SPIRONOLACTONE
     Indication: BLOOD OESTROGEN DECREASED
     Dosage: 100 MG, UNK
     Route: 048
  7. SPIRONOLACTONE. [Concomitant]
     Active Substance: SPIRONOLACTONE
     Indication: JOINT SWELLING
  8. DILANTIN [Suspect]
     Active Substance: PHENYTOIN
  9. GENOTROPIN [Concomitant]
     Active Substance: SOMATROPIN
     Dosage: 0.6 MG, UNK
     Dates: end: 201701

REACTIONS (1)
  - Drug hypersensitivity [Unknown]
